FAERS Safety Report 15623997 (Version 1)
Quarter: 2018Q4

REPORT INFORMATION
  Report Type: Spontaneous
  Country: US (occurrence: US)
  Receive Date: 20181116
  Receipt Date: 20181116
  Transmission Date: 20190205
  Serious: No
  Sender: FDA-Public Use
  Company Number: US-009507513-1811USA006546

PATIENT
  Age: 74 Year
  Sex: Male

DRUGS (1)
  1. INTRON A [Suspect]
     Active Substance: INTERFERON ALFA-2B
     Dosage: STRENGTH 18 MU

REACTIONS (1)
  - Blood glucose increased [Unknown]

NARRATIVE: CASE EVENT DATE: 20171115
